FAERS Safety Report 14645709 (Version 1)
Quarter: 2018Q1

REPORT INFORMATION
  Report Type: Spontaneous
  Country: US (occurrence: US)
  Receive Date: 20180316
  Receipt Date: 20180316
  Transmission Date: 20180509
  Serious: No
  Sender: FDA-Public Use
  Company Number: US-ENDO PHARMACEUTICALS INC-2017-008701

PATIENT
  Age: 67 Year
  Sex: Male

DRUGS (1)
  1. TRAZODONE HYDROCHLORIDE TABLETS 50MG [Suspect]
     Active Substance: TRAZODONE HYDROCHLORIDE
     Indication: PRODUCT USED FOR UNKNOWN INDICATION
     Dosage: UNK UNK, UNKNOWN
     Route: 065

REACTIONS (5)
  - Nipple pain [Unknown]
  - Muscle spasms [Unknown]
  - Insomnia [Unknown]
  - Chest pain [Unknown]
  - Tremor [Unknown]
